FAERS Safety Report 6576739-9 (Version None)
Quarter: 2010Q1

REPORT INFORMATION
  Report Type: 
  Country: None (occurrence: None)
  Receive Date: 20100210
  Receipt Date: 20100201
  Transmission Date: 20100710
  Serious: Yes (Hospitalization)
  Sender: FDA-Public Use
  Company Number: FR-PFIZER INC-2008099044

PATIENT
  Age: 7 Year
  Sex: Male

DRUGS (7)
  1. SOLU-MEDROL [Suspect]
     Indication: BONE SARCOMA
     Dates: start: 20071101
  2. METHOTREXATE SODIUM [Suspect]
     Indication: BONE SARCOMA
     Dosage: 12000 MG/M2, WEEKLY
     Route: 042
     Dates: start: 20070701, end: 20080301
  3. ENDOXAN [Suspect]
     Indication: BONE SARCOMA
     Dosage: 3000 MG/M2, WEEKLY
     Route: 042
     Dates: start: 20070701, end: 20080301
  4. VEPESID [Suspect]
     Indication: BONE SARCOMA
     Dosage: 75 MG/M2, WEEKLY
     Route: 042
     Dates: start: 20070701, end: 20080301
  5. ONDANSETRON HCL [Suspect]
     Indication: PREMEDICATION
     Route: 042
     Dates: start: 20070701, end: 20080301
  6. BACTRIM [Suspect]
     Route: 048
  7. FOLINIC ACID [Concomitant]

REACTIONS (3)
  - DIPLOPIA [None]
  - LEUKODYSTROPHY [None]
  - PUPILS UNEQUAL [None]
